FAERS Safety Report 10268069 (Version 1)
Quarter: 2014Q2

REPORT INFORMATION
  Report Type: Report from Study
  Country: US (occurrence: US)
  Receive Date: 20140630
  Receipt Date: 20140630
  Transmission Date: 20141212
  Serious: Yes (Other)
  Sender: FDA-Public Use
  Company Number: US-SA-2014SA082663

PATIENT
  Sex: Female

DRUGS (2)
  1. AUBAGIO [Suspect]
     Indication: MULTIPLE SCLEROSIS
     Route: 065
  2. COPAXONE [Concomitant]

REACTIONS (3)
  - Intervertebral disc disorder [Unknown]
  - Nerve compression [Unknown]
  - Pain [Unknown]
